FAERS Safety Report 23768633 (Version 5)
Quarter: 2025Q1

REPORT INFORMATION
  Report Type: Report from Study
  Country: CA (occurrence: CA)
  Receive Date: 20240422
  Receipt Date: 20250205
  Transmission Date: 20250408
  Serious: No
  Sender: ROCHE
  Company Number: CA-ROCHE-3183920

PATIENT
  Age: 41 Year
  Sex: Female
  Weight: 65.1 kg

DRUGS (4)
  1. OCREVUS [Suspect]
     Active Substance: OCRELIZUMAB
     Indication: Relapsing-remitting multiple sclerosis
     Dosage: 300 MG AT DAY 0 AND 14, THEN 600 MG EVERY 6 MONTH
     Route: 040
     Dates: start: 20191219
  2. CLARITIN [Concomitant]
     Active Substance: LORATADINE
  3. ALBUTEROL [Concomitant]
     Active Substance: ALBUTEROL
  4. AMOXICILLIN [Concomitant]
     Active Substance: AMOXICILLIN

REACTIONS (12)
  - Nasopharyngitis [Recovered/Resolved]
  - Pyrexia [Unknown]
  - Bronchitis [Not Recovered/Not Resolved]
  - SARS-CoV-2 test positive [Unknown]
  - Sinus congestion [Recovering/Resolving]
  - Cough [Not Recovered/Not Resolved]
  - Allergy to animal [Not Recovered/Not Resolved]
  - Multiple allergies [Not Recovered/Not Resolved]
  - Oral herpes [Recovering/Resolving]
  - Stress [Recovered/Resolved]
  - Tooth disorder [Not Recovered/Not Resolved]
  - Poor venous access [Not Recovered/Not Resolved]

NARRATIVE: CASE EVENT DATE: 20231222
